FAERS Safety Report 22744422 (Version 2)
Quarter: 2023Q4

REPORT INFORMATION
  Report Type: Report from Study
  Country: US (occurrence: US)
  Receive Date: 20230724
  Receipt Date: 20231031
  Transmission Date: 20240109
  Serious: Yes (Other)
  Sender: FDA-Public Use
  Company Number: US-PFIZER INC-US-GBT-021902

PATIENT
  Age: 8 Year
  Sex: Male

DRUGS (2)
  1. OXBRYTA [Suspect]
     Active Substance: VOXELOTOR
     Dosage: 900 MG, 1X/DAY
     Route: 048
  2. OXBRYTA [Suspect]
     Active Substance: VOXELOTOR
     Dosage: 900 MG, 1X/DAY (900 MG ONCE DAILY ORALLY)
     Route: 048

REACTIONS (6)
  - Sickle cell anaemia with crisis [Unknown]
  - Vomiting [Recovered/Resolved]
  - Vitamin D decreased [Unknown]
  - Haemoglobin decreased [Unknown]
  - Blood test abnormal [Unknown]
  - Product dose omission issue [Unknown]

NARRATIVE: CASE EVENT DATE: 20230406
